FAERS Safety Report 12653779 (Version 1)
Quarter: 2016Q3

REPORT INFORMATION
  Report Type: Spontaneous
  Country: JO (occurrence: JO)
  Receive Date: 20160816
  Receipt Date: 20160816
  Transmission Date: 20161109
  Serious: Yes (Other)
  Sender: FDA-Public Use
  Company Number: JO-ROCHE-1810192

PATIENT
  Age: 60 Year
  Sex: Male

DRUGS (1)
  1. XELODA [Suspect]
     Active Substance: CAPECITABINE
     Indication: GASTRIC CANCER
     Route: 048

REACTIONS (4)
  - Suspected counterfeit product [Unknown]
  - Dizziness [Recovered/Resolved]
  - Salivary hypersecretion [Recovered/Resolved]
  - Abdominal discomfort [Recovered/Resolved]
